FAERS Safety Report 4577133-2 (Version None)
Quarter: 2005Q1

REPORT INFORMATION
  Report Type: 
  Country: None (occurrence: None)
  Receive Date: 20050210
  Receipt Date: 20041011
  Transmission Date: 20050727
  Serious: Yes (Life-Threatening, Hospitalization)
  Sender: FDA-Public Use
  Company Number: JP-ROCHE-382774

PATIENT
  Age: 69 Year
  Sex: Female
  Weight: 56 kg

DRUGS (19)
  1. PANALDINE [Suspect]
     Indication: THROMBOSIS PROPHYLAXIS
     Route: 048
     Dates: start: 20040924, end: 20041001
  2. ASPIRIN [Suspect]
     Indication: DRUG USE FOR UNKNOWN INDICATION
     Route: 048
  3. SIGMART [Suspect]
     Indication: DRUG USE FOR UNKNOWN INDICATION
     Route: 065
  4. MUCOSTA [Concomitant]
     Route: 048
  5. MAGNESIUM OXIDE [Concomitant]
  6. GASTER (JAPAN) [Concomitant]
  7. CHLORPROMAZINE [Concomitant]
     Route: 048
  8. SERENACE [Concomitant]
  9. FRANDOL [Concomitant]
     Route: 046
  10. LENDORMIN [Concomitant]
     Route: 048
  11. FESIN [Concomitant]
     Route: 042
     Dates: start: 20040812
  12. UNASYN [Concomitant]
     Dosage: DOSE REPORTED AS 1.5 GM.
     Route: 042
     Dates: start: 20041001
  13. SULBACTAM SODIUM [Concomitant]
  14. VOLTAREN [Concomitant]
     Route: 048
     Dates: start: 20041001
  15. PLETAL [Concomitant]
     Route: 048
     Dates: start: 20041001
  16. HEPARIN [Concomitant]
     Route: 041
     Dates: start: 20041001
  17. FAMOTIDINE [Concomitant]
     Route: 048
  18. BROTIZOLAM [Concomitant]
     Dosage: TRADE NAME REPORTED AS BORBATMIN
     Route: 048
  19. HUMULIN R [Concomitant]
     Dosage: REPORTED AS 4-10 UNITS.
     Route: 058

REACTIONS (13)
  - ALANINE AMINOTRANSFERASE INCREASED [None]
  - ASPARTATE AMINOTRANSFERASE INCREASED [None]
  - BLOOD PRESSURE DECREASED [None]
  - CARDIAC FAILURE ACUTE [None]
  - GASTRIC DISORDER [None]
  - HAEMODIALYSIS [None]
  - HEART RATE INCREASED [None]
  - HEPATIC FUNCTION ABNORMAL [None]
  - LEUKOPENIA [None]
  - MUSCLE DISORDER [None]
  - PYREXIA [None]
  - RENAL FAILURE ACUTE [None]
  - WHITE BLOOD CELL COUNT DECREASED [None]
